FAERS Safety Report 6745969-5 (Version None)
Quarter: 2010Q2

REPORT INFORMATION
  Report Type: 
  Country: None (occurrence: None)
  Receive Date: 20100526
  Receipt Date: 20100510
  Transmission Date: 20101027
  Serious: Yes (Hospitalization, Other)
  Sender: FDA-Public Use
  Company Number: ACO_00884_2010

PATIENT
  Sex: Female

DRUGS (6)
  1. ZANAFLEX [Suspect]
     Indication: MUSCLE SPASTICITY
     Dosage: 6 MG BID, 1 IN MORNING AND 1 IN EVENING ORAL, 4 MG QD,  AT LUNCH TIME ORAL
     Route: 048
  2. ASPIRIN [Concomitant]
  3. SIMVASTATIN [Concomitant]
  4. FERROUS SULFATE TAB [Concomitant]
  5. DOCUSATE SODIUM [Concomitant]
  6. INTRAVENOUS FLUIDS [Concomitant]

REACTIONS (3)
  - DEHYDRATION [None]
  - HYPOTENSION [None]
  - URINARY TRACT INFECTION [None]
